FAERS Safety Report 14738242 (Version 1)
Quarter: 2018Q2

REPORT INFORMATION
  Report Type: Spontaneous
  Country: JP (occurrence: JP)
  Receive Date: 20180409
  Receipt Date: 20180409
  Transmission Date: 20180711
  Serious: Yes (Death)
  Sender: FDA-Public Use
  Company Number: JP-CELGENEUS-JPN-20180306160

PATIENT
  Age: 78 Year
  Sex: Female

DRUGS (1)
  1. POMALYST [Suspect]
     Active Substance: POMALIDOMIDE
     Indication: PLASMA CELL MYELOMA
     Dosage: 2 MILLIGRAM
     Route: 048
     Dates: start: 20180314, end: 20180314

REACTIONS (2)
  - Dysphagia [Not Recovered/Not Resolved]
  - Plasma cell myeloma [Fatal]

NARRATIVE: CASE EVENT DATE: 20180314
